FAERS Safety Report 10233521 (Version 1)
Quarter: 2014Q2

REPORT INFORMATION
  Report Type: Spontaneous
  Country: US (occurrence: None)
  Receive Date: 20140611
  Receipt Date: 20140611
  Transmission Date: 20141212
  Serious: No
  Sender: FDA-Public Use
  Company Number: None

PATIENT
  Age: 55 Year
  Sex: Male
  Weight: 141.8 kg

DRUGS (1)
  1. NAPROXEN [Suspect]
     Indication: PAIN
     Route: 048
     Dates: start: 20140121, end: 20140428

REACTIONS (4)
  - Dizziness [None]
  - Abdominal pain upper [None]
  - Diarrhoea [None]
  - Gastric haemorrhage [None]
